FAERS Safety Report 6616434-0 (Version None)
Quarter: 2010Q1

REPORT INFORMATION
  Report Type: 
  Country: None (occurrence: None)
  Receive Date: 20100305
  Receipt Date: 20100302
  Transmission Date: 20100710
  Serious: Yes (Death, Hospitalization)
  Sender: FDA-Public Use
  Company Number: PHHY2010US12205

PATIENT
  Sex: Male

DRUGS (2)
  1. EXJADE [Suspect]
     Indication: LYMPHATIC DISORDER
     Dosage: 2000 MG DAILY
     Route: 048
     Dates: start: 20090925
  2. EXJADE [Suspect]
     Indication: BLOOD DISORDER

REACTIONS (1)
  - ROAD TRAFFIC ACCIDENT [None]
